FAERS Safety Report 7787935-7 (Version None)
Quarter: 2011Q3

REPORT INFORMATION
  Report Type: 
  Country: None (occurrence: None)
  Receive Date: 20110930
  Receipt Date: 20110921
  Transmission Date: 20111222
  Serious: No
  Sender: FDA-Public Use
  Company Number: US-BIOGENIDEC-2011BI036442

PATIENT
  Age: 26 Year
  Sex: Male

DRUGS (2)
  1. TYSABRI [Suspect]
     Indication: MULTIPLE SCLEROSIS
     Route: 042
     Dates: start: 20110502
  2. TYSABRI [Suspect]
     Route: 042
     Dates: start: 20091007, end: 20101230

REACTIONS (3)
  - MULTIPLE SCLEROSIS [None]
  - MIGRAINE [None]
  - SENSATION OF HEAVINESS [None]
